FAERS Safety Report 4619723-4 (Version None)
Quarter: 2005Q1

REPORT INFORMATION
  Report Type: 
  Country: None (occurrence: None)
  Receive Date: 20050321
  Receipt Date: 20050321
  Transmission Date: 20050727
  Serious: Yes (Life-Threatening, Disabling, Other)
  Sender: FDA-Public Use
  Company Number: None

PATIENT
  Age: 42 Year
  Sex: Female
  Weight: 52.6173 kg

DRUGS (2)
  1. HALDOL [Suspect]
     Indication: DEPRESSION
     Dosage: DAILY PO
     Route: 048
     Dates: start: 19801001
  2. MELLARIL [Suspect]
     Dosage: DAILY PO
     Route: 048
     Dates: start: 19960301

REACTIONS (10)
  - AMNESIA [None]
  - BALANCE DISORDER [None]
  - BLINDNESS [None]
  - BLOOD DISORDER [None]
  - COMMUNICATION DISORDER [None]
  - COORDINATION ABNORMAL [None]
  - INCONTINENCE [None]
  - MENTAL IMPAIRMENT [None]
  - MICTURITION URGENCY [None]
  - TARDIVE DYSKINESIA [None]
